FAERS Safety Report 5960275-4 (Version None)
Quarter: 2008Q4

REPORT INFORMATION
  Report Type: 
  Country: None (occurrence: None)
  Receive Date: 20081110
  Receipt Date: 20080930
  Transmission Date: 20090506
  Serious: No
  Sender: FDA-Public Use
  Company Number: WAES 0810USA00007

PATIENT
  Age: 72 Year
  Sex: Female

DRUGS (8)
  1. ZOLINZA [Suspect]
     Indication: MYCOSIS FUNGOIDES
     Dosage: PO
     Route: 048
     Dates: start: 20080923
  2. ADVAIR HFA [Concomitant]
  3. ALLEGRA [Concomitant]
  4. FLONASE [Concomitant]
  5. LIPITOR [Concomitant]
  6. PREMARIN [Concomitant]
  7. PROTONIX [Concomitant]
  8. ACYCLOVIR [Concomitant]

REACTIONS (4)
  - DIARRHOEA [None]
  - DYSPEPSIA [None]
  - FATIGUE [None]
  - TRANSIENT ISCHAEMIC ATTACK [None]
